FAERS Safety Report 6148467-5 (Version None)
Quarter: 2009Q2

REPORT INFORMATION
  Report Type: 
  Country: None (occurrence: None)
  Receive Date: 20090408
  Receipt Date: 20090327
  Transmission Date: 20091009
  Serious: Yes (Death)
  Sender: FDA-Public Use
  Company Number: GR-TEVA-190595ISR

PATIENT
  Age: 56 Year
  Sex: Male
  Weight: 75 kg

DRUGS (3)
  1. CISPLATIN [Suspect]
     Indication: HEAD AND NECK CANCER
     Route: 042
     Dates: start: 20071206, end: 20080206
  2. CETUXIMAB [Suspect]
     Indication: HEAD AND NECK CANCER
     Route: 042
     Dates: start: 20071206, end: 20080206
  3. FUCICORT [Concomitant]
     Indication: DERMATITIS
     Dates: start: 20071220, end: 20080129

REACTIONS (1)
  - OESOPHAGEAL VARICES HAEMORRHAGE [None]
